FAERS Safety Report 10366588 (Version 1)
Quarter: 2014Q3

REPORT INFORMATION
  Report Type: Spontaneous
  Country: TR (occurrence: None)
  Receive Date: 20140804
  Receipt Date: 20140804
  Transmission Date: 20150326
  Serious: Yes (Other)
  Sender: FDA-Public Use
  Company Number: 2014VER00126

PATIENT

DRUGS (2)
  1. RIFAMPIN. [Suspect]
     Active Substance: RIFAMPIN
  2. ISONIAZID. [Suspect]
     Active Substance: ISONIAZID

REACTIONS (3)
  - Acute hepatic failure [None]
  - Drug-induced liver injury [None]
  - Encephalopathy [None]
